FAERS Safety Report 22089263 (Version 1)
Quarter: 2023Q1

REPORT INFORMATION
  Report Type: Spontaneous
  Country: CA (occurrence: CA)
  Receive Date: 20230313
  Receipt Date: 20230313
  Transmission Date: 20230417
  Serious: Yes (Life-Threatening, Hospitalization, Other)
  Sender: FDA-Public Use
  Company Number: CA-HLS-202300469

PATIENT
  Age: 50 Year
  Sex: Male
  Weight: 89 kg

DRUGS (8)
  1. BUPROPION HYDROCHLORIDE [Concomitant]
     Active Substance: BUPROPION HYDROCHLORIDE
     Dosage: TABLETS DOSAGE FORM
     Route: 065
  2. CLOZAPINE [Suspect]
     Active Substance: CLOZAPINE
     Indication: Schizophrenia
     Dosage: 1 EVERY 1 WEEKS?AMOUNT: 475 MILLIGRAM?TABLETS DOSAGE FORM
     Route: 048
  3. LORAZEPAM [Concomitant]
     Active Substance: LORAZEPAM
     Dosage: NOT SPECIFIED DOSAGE FORM
     Route: 065
  4. OMEPRAZOLE [Concomitant]
     Active Substance: OMEPRAZOLE
     Dosage: NOT SPECIFIED DOSAGE FORM
     Route: 065
  5. OXYCODONE/ACETAMINOPHEN SANDOZ [Concomitant]
     Dosage: NOT SPECIFIED DOSAGE FORM
     Route: 065
  6. ROSUVASTATIN [Concomitant]
     Active Substance: ROSUVASTATIN
     Dosage: TABLETS DOSAGE FORM
     Route: 065
  7. SUMATRIPTAN [Concomitant]
     Active Substance: SUMATRIPTAN
     Dosage: NOT SPECIFIED DOSAGE FORM
     Route: 065
  8. ZOPICLONE [Concomitant]
     Active Substance: ZOPICLONE
     Dosage: TABLETS DOSAGE FORM
     Route: 065

REACTIONS (3)
  - Encephalopathy [Recovered/Resolved]
  - Myocarditis [Recovered/Resolved]
  - Toxicity to various agents [Recovered/Resolved]
